FAERS Safety Report 9438639 (Version 1)
Quarter: 2013Q3

REPORT INFORMATION
  Report Type: Spontaneous
  Country: DE (occurrence: DE)
  Receive Date: 20130802
  Receipt Date: 20130802
  Transmission Date: 20140515
  Serious: Yes (Other)
  Sender: FDA-Public Use
  Company Number: DE-GLAXOSMITHKLINE-D0080682A

PATIENT
  Age: 33 Year
  Sex: Female
  Weight: 80 kg

DRUGS (2)
  1. WELLBUTRIN XL [Suspect]
     Route: 048
     Dates: start: 20130728, end: 20130728
  2. QUETIAPINE [Suspect]
     Dosage: 500MG SINGLE DOSE
     Route: 048
     Dates: start: 20130728, end: 20130728

REACTIONS (7)
  - Suicide attempt [Unknown]
  - Somnolence [Unknown]
  - Photophobia [Unknown]
  - Abdominal symptom [Unknown]
  - Tachycardia [Unknown]
  - Blood gases abnormal [Unknown]
  - Intentional overdose [Unknown]
